FAERS Safety Report 6186223-2 (Version None)
Quarter: 2009Q2

REPORT INFORMATION
  Report Type: 
  Country: None (occurrence: None)
  Receive Date: 20090511
  Receipt Date: 20090430
  Transmission Date: 20091009
  Serious: Yes (Hospitalization, Other)
  Sender: FDA-Public Use
  Company Number: PHHY2009BR16464

PATIENT
  Age: 81 Year
  Sex: Male

DRUGS (2)
  1. FORASEQ [Suspect]
     Indication: ASTHMA
     Dosage: UNK
     Dates: start: 20090201, end: 20090309
  2. BEROTEC [Concomitant]
     Indication: ASTHMA

REACTIONS (2)
  - GASTROINTESTINAL TUBE INSERTION [None]
  - TRACHEOSTOMY [None]
